FAERS Safety Report 8061376-X (Version None)
Quarter: 2012Q1

REPORT INFORMATION
  Report Type: 
  Country: None (occurrence: None)
  Receive Date: 20120120
  Receipt Date: 20120118
  Transmission Date: 20120608
  Serious: Yes (Hospitalization)
  Sender: FDA-Public Use
  Company Number: US-ABBOTT-11P-163-0867549-00

PATIENT
  Sex: Female
  Weight: 70.37 kg

DRUGS (3)
  1. XANAX [Concomitant]
     Indication: ANXIETY
  2. MULTI-VITAMIN [Concomitant]
     Indication: VITAMIN SUPPLEMENTATION
  3. HUMIRA [Suspect]
     Indication: RHEUMATOID ARTHRITIS
     Dates: start: 20080523

REACTIONS (4)
  - WEIGHT INCREASED [None]
  - INSOMNIA [None]
  - CHEST PAIN [None]
  - BLOOD PRESSURE INCREASED [None]
